FAERS Safety Report 7186111-9 (Version None)
Quarter: 2010Q4

REPORT INFORMATION
  Report Type: 
  Country: None (occurrence: None)
  Receive Date: 20101222
  Receipt Date: 20100615
  Transmission Date: 20110411
  Serious: Yes (Hospitalization)
  Sender: FDA-Public Use
  Company Number: US-AMGEN-QUU414636

PATIENT

DRUGS (8)
  1. ENBREL [Suspect]
     Indication: PSORIATIC ARTHROPATHY
     Dosage: 50 MG, QWK
     Route: 058
     Dates: start: 20040101, end: 20080915
  2. ENBREL [Suspect]
     Indication: PSORIASIS
  3. NABUMETONE [Concomitant]
     Dosage: UNK UNK, UNK
     Dates: start: 20060920
  4. NORLESTRIN FE [Concomitant]
     Dosage: UNK UNK, QD
  5. ESCITALOPRAM OXALATE [Concomitant]
     Dosage: 20 MG, QD
  6. ACETAMINOPHEN AND HYDROCODONE BITARTRATE [Concomitant]
  7. PANTOPRAZOLE SODIUM [Concomitant]
     Dosage: 40 MG, QD
  8. PREDNISONE [Concomitant]
     Dosage: 10 MG, QD

REACTIONS (18)
  - ARTHRALGIA [None]
  - B-CELL LYMPHOMA [None]
  - BACK PAIN [None]
  - CHEST DISCOMFORT [None]
  - COLITIS [None]
  - FEELING COLD [None]
  - HYPOAESTHESIA [None]
  - MUSCULOSKELETAL PAIN [None]
  - MYALGIA [None]
  - NAUSEA [None]
  - ORAL HERPES [None]
  - OVARIAN CYST [None]
  - PAIN IN EXTREMITY [None]
  - PSORIASIS [None]
  - SCIATICA [None]
  - SKIN EXFOLIATION [None]
  - TENDERNESS [None]
  - URINARY TRACT INFECTION [None]
